FAERS Safety Report 11609810 (Version 1)
Quarter: 2015Q3

REPORT INFORMATION
  Report Type: Spontaneous
  Country: US (occurrence: US)
  Receive Date: 20150916
  Receipt Date: 20150916
  Transmission Date: 20151125
  Serious: No
  Sender: FDA-Public Use
  Company Number: US-ELI_LILLY_AND_COMPANY-US201308008714

PATIENT
  Sex: Male

DRUGS (5)
  1. HUMALOG MIX75/25 [Suspect]
     Active Substance: INSULIN LISPRO
  2. HUMALOG MIX75/25 [Suspect]
     Active Substance: INSULIN LISPRO
  3. HUMALOG [Suspect]
     Active Substance: INSULIN LISPRO
  4. HUMALOG MIX75/25 [Suspect]
     Active Substance: INSULIN LISPRO
  5. HUMALOG MIX75/25 [Suspect]
     Active Substance: INSULIN LISPRO
     Indication: DIABETES MELLITUS

REACTIONS (1)
  - Intercepted product selection error [Unknown]
